FAERS Safety Report 25882249 (Version 2)
Quarter: 2025Q4

REPORT INFORMATION
  Report Type: Spontaneous
  Country: US (occurrence: US)
  Receive Date: 20251006
  Receipt Date: 20251024
  Transmission Date: 20260118
  Serious: Yes (Other)
  Sender: BRISTOL-MYERS SQUIBB COMPANY
  Company Number: US-BRISTOL-MYERS SQUIBB COMPANY-2025-135514

PATIENT
  Age: 59 Year
  Sex: Male

DRUGS (3)
  1. POMALYST [Suspect]
     Active Substance: POMALIDOMIDE
     Indication: Plasma cell myeloma
     Dosage: TAKE 1 CAPSULE BY MOUTH 1 TIME A DAY FOR 21 DAYS ON THEN 7 DAYS OFF
     Dates: start: 202507
  2. POMALYST [Suspect]
     Active Substance: POMALIDOMIDE
     Dosage: DAILY FOR 21 DAYS ON THEN 7 OFF
  3. REVLIMID [Concomitant]
     Active Substance: LENALIDOMIDE
     Indication: Product used for unknown indication

REACTIONS (2)
  - Pneumonia [Unknown]
  - Neutropenia [Unknown]
